FAERS Safety Report 15683446 (Version 2)
Quarter: 2018Q4

REPORT INFORMATION
  Report Type: Spontaneous
  Country: JP (occurrence: JP)
  Receive Date: 20181204
  Receipt Date: 20181214
  Transmission Date: 20190205
  Serious: Yes (Other)
  Sender: FDA-Public Use
  Company Number: JP-AMGEN-JPNSP2018151998

PATIENT
  Age: 68 Year
  Sex: Female

DRUGS (3)
  1. MAGNESIUM [Concomitant]
     Active Substance: MAGNESIUM
     Indication: CONSTIPATION
     Dosage: UNK
     Route: 065
  2. ENBREL [Suspect]
     Active Substance: ETANERCEPT
     Dosage: 1 DF, QWK
     Route: 065
     Dates: start: 20181017
  3. ENBREL [Suspect]
     Active Substance: ETANERCEPT
     Indication: RHEUMATOID ARTHRITIS
     Dosage: 1 DF, QWK
     Route: 065
     Dates: start: 20180926, end: 201810

REACTIONS (18)
  - Back pain [Recovered/Resolved]
  - Arthralgia [Unknown]
  - Abdominal pain [Unknown]
  - Autoimmune thyroiditis [Unknown]
  - Nausea [Unknown]
  - C-reactive protein increased [Recovered/Resolved]
  - Cystitis [Not Recovered/Not Resolved]
  - Pseudomonas infection [Unknown]
  - Procedural pain [Unknown]
  - Somnolence [Recovered/Resolved]
  - Pyelonephritis [Unknown]
  - Oropharyngeal pain [Unknown]
  - Malaise [Unknown]
  - Blood alkaline phosphatase increased [Not Recovered/Not Resolved]
  - Hepatic cyst [Unknown]
  - Thyroid mass [Unknown]
  - Flatulence [Recovering/Resolving]
  - Dysuria [Unknown]

NARRATIVE: CASE EVENT DATE: 201810
